FAERS Safety Report 5465427-8 (Version None)
Quarter: 2007Q3

REPORT INFORMATION
  Report Type: 
  Country: None (occurrence: None)
  Receive Date: 20070924
  Receipt Date: 20070912
  Transmission Date: 20080115
  Serious: Yes (Hospitalization)
  Sender: FDA-Public Use
  Company Number: US-KINGPHARMUSA00001-K200701169

PATIENT

DRUGS (7)
  1. ALTACE [Suspect]
     Dosage: 5 MG, QD
     Route: 048
  2. FOLIC ACID [Suspect]
     Dosage: 1-0-0, QD
     Route: 048
  3. NOVODIGAL/00017701/ [Concomitant]
     Dosage: .1 MG, UNK
     Route: 048
  4. ASPIRIN [Concomitant]
     Dosage: 100 MG, UNK
     Route: 048
  5. NEXIUM [Concomitant]
     Dosage: 80 MG, UNK
     Route: 048
  6. NEUROTRAT /00038701/ [Concomitant]
     Dosage: 1-0-0, QD
     Route: 048
  7. OXAZEPAM [Concomitant]
     Dosage: 10 MG, UNK
     Route: 048

REACTIONS (5)
  - BRADYCARDIA [None]
  - DYSPNOEA EXERTIONAL [None]
  - PNEUMONIA [None]
  - RESUSCITATION [None]
  - SYNCOPE [None]
